FAERS Safety Report 19652802 (Version 1)
Quarter: 2021Q3

REPORT INFORMATION
  Report Type: Spontaneous
  Country: US (occurrence: US)
  Receive Date: 20210803
  Receipt Date: 20210803
  Transmission Date: 20211014
  Serious: Yes (Hospitalization)
  Sender: FDA-Public Use
  Company Number: US-SA-2021SA252528

PATIENT
  Age: 65 Year
  Sex: Female

DRUGS (1)
  1. LANTUS SOLOSTAR [Suspect]
     Active Substance: INSULIN GLARGINE
     Indication: DIABETES MELLITUS
     Dosage: 32 IU, QD
     Route: 065

REACTIONS (5)
  - Spinal operation [Unknown]
  - Mastectomy [Unknown]
  - Product prescribing issue [Unknown]
  - Visual impairment [Unknown]
  - Limb operation [Unknown]
